FAERS Safety Report 10239084 (Version 2)
Quarter: 2014Q3

REPORT INFORMATION
  Report Type: Spontaneous
  Country: GB (occurrence: GB)
  Receive Date: 20140616
  Receipt Date: 20140814
  Transmission Date: 20150326
  Serious: Yes (Hospitalization)
  Sender: FDA-Public Use
  Company Number: GB-PFIZER INC-2014159782

PATIENT
  Age: 81 Year
  Sex: Male

DRUGS (8)
  1. ATENOLOL. [Concomitant]
     Active Substance: ATENOLOL
  2. ATORVASTATIN [Concomitant]
     Active Substance: ATORVASTATIN
  3. PERINDOPRIL ERBUMINE. [Concomitant]
     Active Substance: PERINDOPRIL ERBUMINE
  4. SUNITINIB [Concomitant]
     Active Substance: SUNITINIB
  5. ASPIRIN ^BAYER^ [Concomitant]
     Active Substance: ASPIRIN
  6. GTN [Concomitant]
     Active Substance: NITROGLYCERIN
  7. ISOSORBIDE [Concomitant]
     Active Substance: ISOSORBIDE
  8. AXITINIB [Suspect]
     Active Substance: AXITINIB
     Indication: RENAL CANCER METASTATIC
     Dosage: 5 MG, 2X/DAY
     Route: 048
     Dates: start: 20140514, end: 20140519

REACTIONS (2)
  - Convulsion [Recovered/Resolved]
  - Dyspnoea [Recovered/Resolved]

NARRATIVE: CASE EVENT DATE: 20140521
